FAERS Safety Report 6390106-2 (Version None)
Quarter: 2009Q4

REPORT INFORMATION
  Report Type: 
  Country: None (occurrence: None)
  Receive Date: 20091006
  Receipt Date: 20090925
  Transmission Date: 20100525
  Serious: Yes (Other)
  Sender: FDA-Public Use
  Company Number: US-JNJFOC-20091000298

PATIENT
  Sex: Male

DRUGS (2)
  1. CHILDREN'S TYLENOL LIQUID VERY BERRY STRAWBERRY [Suspect]
     Route: 048
  2. CHILDREN'S TYLENOL LIQUID VERY BERRY STRAWBERRY [Suspect]
     Indication: PAIN
     Dosage: FIRST TIME USE
     Route: 048

REACTIONS (2)
  - HYPERSOMNIA [None]
  - TRANSMISSION OF AN INFECTIOUS AGENT VIA A MEDICINAL PRODUCT [None]
